FAERS Safety Report 7808603-9 (Version None)
Quarter: 2011Q4

REPORT INFORMATION
  Report Type: 
  Country: None (occurrence: None)
  Receive Date: 20111012
  Receipt Date: 20111005
  Transmission Date: 20120403
  Serious: No
  Sender: FDA-Public Use
  Company Number: US-PFIZER INC-2011238570

PATIENT
  Sex: Female

DRUGS (13)
  1. LEVOTHYROXINE [Concomitant]
     Dosage: UNK
  2. ZITHROMAX [Suspect]
     Dosage: 250 MG, UNK
     Dates: start: 20110101, end: 20110101
  3. GUAIFENESIN W/DEXTROMETHORPHAN [Concomitant]
     Dosage: UNK
  4. DRONEDARONE [Concomitant]
     Indication: ATRIAL FIBRILLATION
     Dosage: 400 MG, 2X/DAY
     Route: 048
     Dates: start: 20110825, end: 20110913
  5. DABIGATRAN [Concomitant]
     Dosage: UNK
  6. KLOR-CON [Concomitant]
     Dosage: UNK
  7. RENAVIT [Concomitant]
     Dosage: UNK
  8. DOCUSATE [Concomitant]
     Dosage: UNK
  9. DIGOXIN [Concomitant]
     Dosage: 0.125 MG, 1X/DAY
     Dates: start: 20110825, end: 20110913
  10. LORATADINE [Concomitant]
     Dosage: UNK
  11. METOPROLOL TARTRATE [Concomitant]
     Dosage: 50 MG, 2X/DAY
     Dates: start: 20110825, end: 20110913
  12. LASIX [Concomitant]
     Dosage: UNK
  13. CALCIUM CITRATE/COLECALCIFEROL [Concomitant]
     Dosage: UNK

REACTIONS (1)
  - HEART RATE INCREASED [None]
